FAERS Safety Report 17829681 (Version 1)
Quarter: 2020Q2

REPORT INFORMATION
  Report Type: Spontaneous
  Country: IT (occurrence: IT)
  Receive Date: 20200527
  Receipt Date: 20200527
  Transmission Date: 20200714
  Serious: Yes (Other)
  Sender: FDA-Public Use
  Company Number: IT-PFIZER INC-2020208889

PATIENT
  Age: 70 Year
  Sex: Female

DRUGS (2)
  1. BOSULIF [Suspect]
     Active Substance: BOSUTINIB MONOHYDRATE
     Indication: CHRONIC MYELOID LEUKAEMIA
     Dosage: 200 MG
  2. IMATINIB. [Suspect]
     Active Substance: IMATINIB MESYLATE
     Dosage: UNK

REACTIONS (2)
  - Neoplasm progression [Unknown]
  - Colitis ischaemic [Unknown]
